FAERS Safety Report 8454220-X (Version None)
Quarter: 2012Q2

REPORT INFORMATION
  Report Type: 
  Country: None (occurrence: None)
  Receive Date: 20120620
  Receipt Date: 20120618
  Transmission Date: 20120825
  Serious: Yes (Hospitalization, Other)
  Sender: FDA-Public Use
  Company Number: JP-ABBOTT-12P-087-0917837-00

PATIENT
  Sex: Male
  Weight: 58.8 kg

DRUGS (5)
  1. PROGRAF [Suspect]
     Indication: RHEUMATOID ARTHRITIS
     Dates: start: 20071102, end: 20120315
  2. HUMIRA [Suspect]
     Indication: RHEUMATOID ARTHRITIS
     Route: 058
     Dates: start: 20090326, end: 20120301
  3. MECOBALAMIN [Concomitant]
     Indication: PRODUCT USED FOR UNKNOWN INDICATION
     Dates: start: 20050401, end: 20120315
  4. PREDNISOLONE [Suspect]
     Indication: RHEUMATOID ARTHRITIS
     Dates: start: 20031120
  5. CELECOXIB [Concomitant]
     Indication: PRODUCT USED FOR UNKNOWN INDICATION
     Dates: start: 20090507

REACTIONS (4)
  - EYE INFECTION FUNGAL [None]
  - UPPER RESPIRATORY TRACT INFLAMMATION [None]
  - IMMUNOSUPPRESSION [None]
  - STOMATITIS [None]
